FAERS Safety Report 4339963-1 (Version None)
Quarter: 2004Q2

REPORT INFORMATION
  Report Type: 
  Country: None (occurrence: None)
  Receive Date: 20040412
  Receipt Date: 20040401
  Transmission Date: 20050107
  Serious: Yes (Hospitalization)
  Sender: FDA-Public Use
  Company Number: IT-JNJFOC-20031202469

PATIENT
  Age: 62 Year
  Sex: Male

DRUGS (5)
  1. REMICADE [Suspect]
     Indication: RHEUMATOID ARTHRITIS
     Dosage: 100 MG, INTRAVENOUS ; 200 MG, INTRAVENOUS
     Route: 042
     Dates: start: 20020311, end: 20030317
  2. REMICADE [Suspect]
     Indication: RHEUMATOID ARTHRITIS
     Dosage: 100 MG, INTRAVENOUS ; 200 MG, INTRAVENOUS
     Route: 042
     Dates: start: 20030701, end: 20030901
  3. METHOTREXATE [Suspect]
     Indication: RHEUMATOID ARTHRITIS
     Dosage: 10 MG, ORAL
     Route: 048
     Dates: start: 20020311, end: 20031025
  4. KINERET [Suspect]
     Indication: RHEUMATOID ARTHRITIS
     Dosage: 100 MG, SUBCUTANEOUS
     Route: 058
     Dates: start: 20030701, end: 20030901
  5. METHYLPREDNISOLONE [Concomitant]

REACTIONS (4)
  - COUGH [None]
  - DISSEMINATED TUBERCULOSIS [None]
  - JOINT SWELLING [None]
  - PYREXIA [None]
